FAERS Safety Report 6879824-7 (Version None)
Quarter: 2010Q3

REPORT INFORMATION
  Report Type: 
  Country: None (occurrence: None)
  Receive Date: 20100728
  Receipt Date: 20100719
  Transmission Date: 20110219
  Serious: Yes (Other)
  Sender: FDA-Public Use
  Company Number: CA-JNJFOC-20100706806

PATIENT
  Sex: Male
  Weight: 69.85 kg

DRUGS (7)
  1. REMICADE [Suspect]
     Indication: CROHN'S DISEASE
     Route: 042
     Dates: start: 20070101
  2. ESCITALOPRAM [Concomitant]
  3. WELLBUTRIN [Concomitant]
  4. IMOVANE [Concomitant]
  5. PROSCAR [Concomitant]
  6. DILAUDID [Concomitant]
     Dosage: 2-4 MG EVERY 6 HOURS AS NEEDED
     Route: 048
  7. ATIVAN [Concomitant]
     Route: 060

REACTIONS (1)
  - PANCREATITIS ACUTE [None]
